FAERS Safety Report 4323382-8 (Version None)
Quarter: 2004Q1

REPORT INFORMATION
  Report Type: 
  Country: None (occurrence: None)
  Receive Date: 20040325
  Receipt Date: 20040317
  Transmission Date: 20041129
  Serious: Yes (Other)
  Sender: FDA-Public Use
  Company Number: CA-GLAXOSMITHKLINE-A0503364A

PATIENT
  Age: 29 Year
  Sex: Female

DRUGS (13)
  1. WELLBUTRIN SR [Suspect]
     Indication: DRUG USE FOR UNKNOWN INDICATION
     Dosage: 400MG PER DAY
  2. CLOZARIL [Suspect]
     Indication: DRUG USE FOR UNKNOWN INDICATION
     Dosage: 575MG PER DAY
     Route: 048
  3. DILANTIN [Suspect]
     Indication: DRUG USE FOR UNKNOWN INDICATION
  4. CLOPIXOL [Concomitant]
     Indication: DRUG USE FOR UNKNOWN INDICATION
  5. COGENTIN [Concomitant]
     Indication: DRUG USE FOR UNKNOWN INDICATION
  6. FLUOXETINE [Concomitant]
     Indication: DRUG USE FOR UNKNOWN INDICATION
  7. LAMICTAL [Concomitant]
     Indication: DRUG USE FOR UNKNOWN INDICATION
  8. LAMOTRIGINE [Concomitant]
     Indication: DRUG USE FOR UNKNOWN INDICATION
  9. LECTOPAM TAB [Concomitant]
     Indication: DRUG USE FOR UNKNOWN INDICATION
  10. OLANZAPINE [Concomitant]
     Indication: DRUG USE FOR UNKNOWN INDICATION
  11. PROZAC [Concomitant]
     Indication: DRUG USE FOR UNKNOWN INDICATION
  12. SEROQUEL [Concomitant]
     Indication: DRUG USE FOR UNKNOWN INDICATION
  13. ZYPREXA [Concomitant]
     Indication: DRUG USE FOR UNKNOWN INDICATION

REACTIONS (5)
  - CONVULSION [None]
  - DRUG INTERACTION [None]
  - DRUG LEVEL DECREASED [None]
  - GRAND MAL CONVULSION [None]
  - THERAPEUTIC RESPONSE DECREASED [None]
